FAERS Safety Report 5032765-2 (Version None)
Quarter: 2006Q2

REPORT INFORMATION
  Report Type: 
  Country: None (occurrence: None)
  Receive Date: 20060622
  Receipt Date: 20060519
  Transmission Date: 20061013
  Serious: Yes (Hospitalization)
  Sender: FDA-Public Use
  Company Number: JP-MERCK-0605USA04423

PATIENT
  Age: 79 Year
  Sex: Male
  Weight: 60 kg

DRUGS (8)
  1. COZAAR [Suspect]
     Indication: HYPERTENSION
     Route: 048
     Dates: start: 20060415, end: 20060507
  2. HERBESSER [Suspect]
     Indication: MYOCARDIAL INFARCTION
     Route: 048
     Dates: start: 20060415, end: 20060507
  3. ARTIST [Suspect]
     Indication: MYOCARDIAL INFARCTION
     Route: 048
     Dates: start: 20060415, end: 20060507
  4. MAGNESIUM OXIDE [Suspect]
     Indication: CONSTIPATION
     Route: 048
     Dates: start: 20060415, end: 20060507
  5. THYRADIN-S [Concomitant]
     Indication: AUTOIMMUNE THYROIDITIS
     Route: 048
  6. TICLOPIDINE HYDROCHLORIDE [Concomitant]
     Indication: CEREBRAL INFARCTION
     Route: 048
     Dates: start: 20060220
  7. ASPIRIN [Concomitant]
     Indication: CEREBRAL INFARCTION
     Route: 048
     Dates: start: 20060220
  8. TAKEPRON [Concomitant]
     Indication: REFLUX OESOPHAGITIS
     Route: 048

REACTIONS (7)
  - ALANINE AMINOTRANSFERASE INCREASED [None]
  - ASPARTATE AMINOTRANSFERASE INCREASED [None]
  - BLOOD CREATININE INCREASED [None]
  - DRUG ERUPTION [None]
  - ERYTHEMA [None]
  - RASH [None]
  - RASH PAPULAR [None]
